FAERS Safety Report 23553506 (Version 1)
Quarter: 2024Q1

REPORT INFORMATION
  Report Type: Report from Study
  Country: CA (occurrence: CA)
  Receive Date: 20240222
  Receipt Date: 20240222
  Transmission Date: 20240409
  Serious: Yes (Other)
  Sender: FDA-Public Use
  Company Number: CA-JNJFOC-20240251008

PATIENT
  Age: 28 Year
  Sex: Male

DRUGS (2)
  1. REMICADE [Suspect]
     Active Substance: INFLIXIMAB
     Indication: Colitis ulcerative
     Route: 041
     Dates: start: 20140902
  2. REMICADE [Suspect]
     Active Substance: INFLIXIMAB
     Dosage: PATIENT HAD 63 INFUSION STILL NOW.
     Route: 041
     Dates: start: 20140902

REACTIONS (1)
  - Streptococcal infection [Recovered/Resolved]

NARRATIVE: CASE EVENT DATE: 20240201
